FAERS Safety Report 23425047 (Version 1)
Quarter: 2024Q1

REPORT INFORMATION
  Report Type: Spontaneous
  Country: FR (occurrence: FR)
  Receive Date: 20240121
  Receipt Date: 20240121
  Transmission Date: 20240410
  Serious: Yes (Life-Threatening)
  Sender: FDA-Public Use
  Company Number: None

PATIENT
  Age: 67 Year
  Sex: Male

DRUGS (14)
  1. RISPERDAL [Suspect]
     Active Substance: RISPERIDONE
     Indication: Product used for unknown indication
     Route: 048
     Dates: start: 20231210, end: 20231229
  2. METHOTREXATE [Suspect]
     Active Substance: METHOTREXATE
     Indication: Rheumatoid arthritis
     Route: 058
     Dates: start: 20231218, end: 20231229
  3. VICTOZA [Suspect]
     Active Substance: LIRAGLUTIDE
     Indication: Type 2 diabetes mellitus
     Route: 058
     Dates: start: 20231213, end: 20231229
  4. GLICLAZIDE [Concomitant]
     Active Substance: GLICLAZIDE
  5. TRULICITY [Concomitant]
     Active Substance: DULAGLUTIDE
  6. KARDEGIC [Concomitant]
     Active Substance: ASPIRIN DL-LYSINE
  7. LEVOTHYROXINE [Concomitant]
     Active Substance: LEVOTHYROXINE\LEVOTHYROXINE SODIUM
  8. AMITRIPTYLINE [Concomitant]
     Active Substance: AMITRIPTYLINE
  9. BISOPROLOL [Concomitant]
     Active Substance: BISOPROLOL\BISOPROLOL FUMARATE
  10. MAGNESIUM [Concomitant]
     Active Substance: MAGNESIUM
  11. LANSOPRAZOLE [Concomitant]
     Active Substance: LANSOPRAZOLE
  12. METFORMIN HYDROCHLORIDE [Concomitant]
     Active Substance: METFORMIN HYDROCHLORIDE
  13. ATORVASTATIN [Concomitant]
     Active Substance: ATORVASTATIN
  14. NITROGLYCERIN [Concomitant]
     Active Substance: NITROGLYCERIN

REACTIONS (1)
  - Bone marrow failure [Recovering/Resolving]

NARRATIVE: CASE EVENT DATE: 20231229
